FAERS Safety Report 9518395 (Version 1)
Quarter: 2013Q3

REPORT INFORMATION
  Report Type: Spontaneous
  Country: BR (occurrence: BR)
  Receive Date: 20130912
  Receipt Date: 20130912
  Transmission Date: 20140515
  Serious: Yes (Other)
  Sender: FDA-Public Use
  Company Number: BR-ELI_LILLY_AND_COMPANY-BR201309000205

PATIENT
  Age: 79 Year
  Sex: Female

DRUGS (7)
  1. HUMULIN N [Suspect]
     Indication: TYPE 2 DIABETES MELLITUS
     Dosage: 30 IU, EACH MORNING
     Route: 058
     Dates: start: 2003
  2. HUMULIN N [Suspect]
     Dosage: 30 IU, EACH EVENING
     Route: 058
  3. HUMULIN N [Suspect]
     Dosage: 40 IU, EACH MORNING
     Route: 058
  4. HUMULIN N [Suspect]
     Dosage: 40 IU, EACH EVENING
     Route: 058
  5. HUMULIN N [Suspect]
     Dosage: 90 IU, EACH MORNING
     Route: 058
  6. LOSARTAN [Concomitant]
     Indication: BLOOD PRESSURE
     Dosage: UNK, UNKNOWN
     Route: 065
  7. PURAN T4 [Concomitant]
     Indication: HYPOTHYROIDISM
     Dosage: UNK, UNKNOWN
     Route: 065

REACTIONS (4)
  - Macular degeneration [Unknown]
  - Feeling abnormal [Recovered/Resolved]
  - Drug dose omission [Unknown]
  - Hypoglycaemia [Recovered/Resolved]
